FAERS Safety Report 7599545-5 (Version None)
Quarter: 2011Q3

REPORT INFORMATION
  Report Type: 
  Country: None (occurrence: None)
  Receive Date: 20110711
  Receipt Date: 20110708
  Transmission Date: 20111222
  Serious: Yes (Death, Other)
  Sender: FDA-Public Use
  Company Number: US-BRISTOL-MYERS SQUIBB COMPANY-13315510

PATIENT
  Age: 52 Year
  Sex: Female

DRUGS (1)
  1. SPRYCEL [Suspect]
     Indication: LEUKAEMIA
     Route: 048
     Dates: start: 20060309

REACTIONS (2)
  - THROMBOCYTOPENIA [None]
  - CEREBRAL HAEMORRHAGE [None]
